FAERS Safety Report 4283254-4 (Version None)
Quarter: 2004Q1

REPORT INFORMATION
  Report Type: 
  Country: None (occurrence: None)
  Receive Date: 20040129
  Receipt Date: 20040122
  Transmission Date: 20041129
  Serious: Yes (Life-Threatening)
  Sender: FDA-Public Use
  Company Number: 2004CG00134

PATIENT
  Age: 55 Year
  Sex: Male
  Weight: 99 kg

DRUGS (5)
  1. DIPRIVAN [Suspect]
     Dates: start: 20040105, end: 20040105
  2. HYPNOVEL [Suspect]
     Dates: start: 20040105, end: 20040105
  3. SUFENTA [Suspect]
     Dates: start: 20040105, end: 20040105
  4. FORENE [Suspect]
     Dates: start: 20040105, end: 20040105
  5. AUGMENTIN '125' [Suspect]
     Dates: start: 20040105, end: 20040105

REACTIONS (4)
  - ELECTROCARDIOGRAM ST SEGMENT ELEVATION [None]
  - ERYTHEMA [None]
  - HYPOTENSION [None]
  - HYPOXIA [None]
